FAERS Safety Report 10051116 (Version 2)
Quarter: 2014Q2

REPORT INFORMATION
  Report Type: Spontaneous
  Country: US (occurrence: US)
  Receive Date: 20140401
  Receipt Date: 20140401
  Transmission Date: 20141212
  Serious: No
  Sender: FDA-Public Use
  Company Number: US-ASTRAZENECA-2012SE30148

PATIENT
  Age: 71 Year
  Sex: Female
  Weight: 104.3 kg

DRUGS (8)
  1. NEXIUM [Suspect]
     Indication: GASTROOESOPHAGEAL REFLUX DISEASE
     Route: 048
     Dates: start: 2006, end: 201312
  2. LISINOPRIL [Suspect]
     Indication: BLOOD PRESSURE
     Route: 048
     Dates: start: 2010
  3. REQUIP [Concomitant]
     Indication: RESTLESS LEGS SYNDROME
     Route: 048
     Dates: start: 201307
  4. BUSPIRONE [Concomitant]
     Indication: NERVE DEGENERATION
     Route: 048
     Dates: start: 201310
  5. TYLENOL [Concomitant]
     Indication: PAIN
     Dosage: 330 DAILY
     Route: 048
  6. TRAZADONE [Concomitant]
     Indication: SLEEP DISORDER
     Route: 048
     Dates: start: 201310
  7. PROZAC [Concomitant]
     Route: 048
     Dates: start: 2010
  8. LASIX [Concomitant]
     Indication: SWELLING
     Route: 048
     Dates: start: 201312

REACTIONS (7)
  - Arthritis [Unknown]
  - Gastrooesophageal reflux disease [Unknown]
  - Restless legs syndrome [Unknown]
  - Peripheral swelling [Unknown]
  - Bronchitis [Not Recovered/Not Resolved]
  - Malaise [Not Recovered/Not Resolved]
  - Drug dose omission [Unknown]
